APPROVED DRUG PRODUCT: IRINOTECAN HYDROCHLORIDE
Active Ingredient: IRINOTECAN HYDROCHLORIDE
Strength: 100MG/5ML (20MG/ML)
Dosage Form/Route: INJECTABLE;INJECTION
Application: A078188 | Product #002
Applicant: FRESENIUS KABI USA LLC
Approved: Feb 27, 2008 | RLD: No | RS: No | Type: DISCN